FAERS Safety Report 5861945-9 (Version None)
Quarter: 2008Q3

REPORT INFORMATION
  Report Type: 
  Country: None (occurrence: None)
  Receive Date: 20080827
  Receipt Date: 20080723
  Transmission Date: 20090109
  Serious: No
  Sender: FDA-Public Use
  Company Number: US-ABBOTT-08P-163-0465295-00

PATIENT
  Sex: Male

DRUGS (5)
  1. NIASPAN [Suspect]
     Indication: BLOOD CHOLESTEROL INCREASED
     Route: 048
     Dates: start: 20080701, end: 20080701
  2. NIASPAN [Suspect]
     Dosage: 1000MG PER DAY, 2 TABLETS AT NIGHT
     Route: 048
     Dates: start: 20080701, end: 20080701
  3. NIASPAN [Suspect]
     Dosage: 1500MG PER DAY, 3 TABLETS AT NIGHT
     Route: 048
     Dates: start: 20080701
  4. ACETYLSALICYLIC ACID SRT [Concomitant]
     Indication: PROPHYLAXIS
     Route: 048
  5. PRINZIDE [Concomitant]
     Indication: DRUG USE FOR UNKNOWN INDICATION
     Dosage: 20/25 MG QD
     Route: 048

REACTIONS (4)
  - FEELING ABNORMAL [None]
  - FLUSHING [None]
  - INSOMNIA [None]
  - MUSCULOSKELETAL CHEST PAIN [None]
